FAERS Safety Report 25368375 (Version 1)
Quarter: 2025Q2

REPORT INFORMATION
  Report Type: Report from Study
  Country: GB (occurrence: GB)
  Receive Date: 20250528
  Receipt Date: 20250528
  Transmission Date: 20250716
  Serious: Yes (Other)
  Sender: JOHNSON AND JOHNSON
  Company Number: GB-JNJFOC-20250512425

PATIENT
  Sex: Female

DRUGS (1)
  1. TREMFYA [Suspect]
     Active Substance: GUSELKUMAB
     Indication: Pustular psoriasis
     Route: 058
     Dates: start: 20250522

REACTIONS (7)
  - Depressed level of consciousness [Recovering/Resolving]
  - Dysphagia [Unknown]
  - Somnolence [Unknown]
  - Throat tightness [Unknown]
  - Eye movement disorder [Unknown]
  - Hypokinesia [Unknown]
  - Off label use [Unknown]

NARRATIVE: CASE EVENT DATE: 20250522
